FAERS Safety Report 7137573-4 (Version None)
Quarter: 2010Q4

REPORT INFORMATION
  Report Type: 
  Country: None (occurrence: None)
  Receive Date: 20101206
  Receipt Date: 20101201
  Transmission Date: 20110411
  Serious: Yes (Other)
  Sender: FDA-Public Use
  Company Number: CA-SP-2010-03375

PATIENT
  Sex: Female

DRUGS (1)
  1. TUBERSOL [Suspect]
     Indication: TUBERCULIN TEST
     Dosage: NOT REPORTED
     Route: 042
     Dates: start: 20090529, end: 20090529

REACTIONS (6)
  - ANAPHYLACTIC REACTION [None]
  - DIZZINESS [None]
  - HYPOAESTHESIA FACIAL [None]
  - HYPOAESTHESIA ORAL [None]
  - INCORRECT ROUTE OF DRUG ADMINISTRATION [None]
  - PARAESTHESIA ORAL [None]
